FAERS Safety Report 21411431 (Version 3)
Quarter: 2022Q4

REPORT INFORMATION
  Report Type: Spontaneous
  Country: US (occurrence: US)
  Receive Date: 20221005
  Receipt Date: 20221115
  Transmission Date: 20230113
  Serious: Yes (Other)
  Sender: FDA-Public Use
  Company Number: US-PFIZER INC-PV202200076478

PATIENT
  Age: 52 Year
  Sex: Female

DRUGS (3)
  1. XELJANZ XR [Suspect]
     Active Substance: TOFACITINIB CITRATE
     Indication: Colitis ulcerative
     Dosage: 22 MG, 1X/DAY, (FOR 4 WEEKS)
     Route: 048
     Dates: start: 20221003, end: 20221023
  2. XELJANZ XR [Suspect]
     Active Substance: TOFACITINIB CITRATE
     Dosage: 11 MG, 1X/DAY
  3. XELJANZ XR [Suspect]
     Active Substance: TOFACITINIB CITRATE
     Dosage: 22 MG, 1X/DAY, (8 WEEKS (MAXIMUM OF 16 WEEKS)
     Dates: start: 20221003, end: 20221023

REACTIONS (7)
  - Intervertebral disc disorder [Not Recovered/Not Resolved]
  - Diarrhoea [Not Recovered/Not Resolved]
  - Headache [Not Recovered/Not Resolved]
  - Sinus disorder [Not Recovered/Not Resolved]
  - Pain [Not Recovered/Not Resolved]
  - Rash [Unknown]
  - Off label use [Unknown]
